FAERS Safety Report 26204773 (Version 1)
Quarter: 2025Q4

REPORT INFORMATION
  Report Type: Report from Study
  Country: US (occurrence: None)
  Receive Date: 20251227
  Receipt Date: 20251227
  Transmission Date: 20260118
  Serious: No
  Sender: IONIS PHARMACEUTICALS
  Company Number: US-IONIS PHARMACEUTICALS, INC.-2025ION000002

PATIENT
  Age: 27 Year

DRUGS (1)
  1. DAWNZERA [Suspect]
     Active Substance: DONIDALORSEN
     Indication: Hereditary angioedema
     Dosage: 80 MILLIGRAM, Q4W

REACTIONS (1)
  - Swelling [Unknown]
